FAERS Safety Report 10184881 (Version 4)
Quarter: 2014Q4

REPORT INFORMATION
  Report Type: Spontaneous
  Country: KR (occurrence: KR)
  Receive Date: 20140521
  Receipt Date: 20141104
  Transmission Date: 20150528
  Serious: Yes (Life-Threatening, Hospitalization)
  Sender: FDA-Public Use
  Company Number: KR-RANBAXY-2014R1-81450

PATIENT
  Age: 68 Year
  Sex: Female

DRUGS (7)
  1. HYDROCHLOROTHIAZIDE. [Suspect]
     Active Substance: HYDROCHLOROTHIAZIDE
     Indication: HYPERTENSION
     Dosage: 12.5 MG, DAILY
     Route: 065
  2. LEVOTHYROXINE [Suspect]
     Active Substance: LEVOTHYROXINE
     Indication: PROPHYLAXIS
     Dosage: UNK
     Route: 065
  3. RADIOACTIVE IODINE THERAPY [Suspect]
     Active Substance: SODIUM IODIDE I-131
     Indication: PRODUCT USED FOR UNKNOWN INDICATION
     Dosage: 150 MCI, SINGLE
     Route: 065
  4. LIOTHYROXINE [Concomitant]
     Indication: PROPHYLAXIS
     Dosage: 40 ?G, DAILY
     Route: 065
  5. TELMISARTAN. [Concomitant]
     Active Substance: TELMISARTAN
     Indication: HYPERTENSION
     Dosage: UNK
     Route: 065
  6. AMLODIPINE [Concomitant]
     Active Substance: AMLODIPINE BESYLATE
     Indication: HYPERTENSION
     Dosage: UNK
     Route: 065
  7. LEVOTHYROXINE [Suspect]
     Active Substance: LEVOTHYROXINE
     Indication: PROPHYLAXIS
     Dosage: 0.2 MG, DAILY
     Route: 065

REACTIONS (6)
  - Hyponatraemia [Recovered/Resolved]
  - Vomiting [Recovering/Resolving]
  - Neurological symptom [Recovering/Resolving]
  - Nausea [Recovering/Resolving]
  - Hypothyroidism [Recovered/Resolved]
  - Altered state of consciousness [Recovering/Resolving]
